FAERS Safety Report 23599633 (Version 2)
Quarter: 2024Q1

REPORT INFORMATION
  Report Type: Report from Study
  Country: US (occurrence: US)
  Receive Date: 20240306
  Receipt Date: 20240321
  Transmission Date: 20240410
  Serious: Yes (Hospitalization, Other)
  Sender: FDA-Public Use
  Company Number: US-ARGENX-2023-ARGX-US004536

PATIENT

DRUGS (1)
  1. VYVGART [Suspect]
     Active Substance: EFGARTIGIMOD ALFA-FCAB
     Indication: Myasthenia gravis
     Dosage: UNK
     Route: 042
     Dates: start: 20231130

REACTIONS (10)
  - Pneumonia [Recovered/Resolved]
  - Dysphagia [Unknown]
  - Gingivitis [Unknown]
  - Compression fracture [Unknown]
  - Chest injury [Unknown]
  - Inappropriate schedule of product administration [Unknown]
  - Alopecia [Unknown]
  - Cushingoid [Unknown]
  - Osteoporosis [Unknown]
  - Infection [Unknown]
